FAERS Safety Report 7096840-3 (Version None)
Quarter: 2010Q4

REPORT INFORMATION
  Report Type: 
  Country: None (occurrence: None)
  Receive Date: 20101103
  Receipt Date: 20101021
  Transmission Date: 20110411
  Serious: Yes (Other)
  Sender: FDA-Public Use
  Company Number: TPA2010A05070

PATIENT
  Age: 75 Year
  Sex: Male

DRUGS (2)
  1. ADENURIC (FEBUXOSTAT) [Suspect]
     Indication: HYPERURICAEMIA
     Dosage: 160 MG, ORAL
     Route: 048
     Dates: start: 20100701, end: 20100721
  2. TRAMADOL HCL [Concomitant]

REACTIONS (1)
  - HYPERTENSIVE CRISIS [None]
